FAERS Safety Report 6601994-6 (Version None)
Quarter: 2010Q1

REPORT INFORMATION
  Report Type: 
  Country: None (occurrence: None)
  Receive Date: 20100218
  Receipt Date: 20100203
  Transmission Date: 20100710
  Serious: Yes (Other)
  Sender: FDA-Public Use
  Company Number: 280001L10USA

PATIENT
  Age: 31 Year
  Sex: Female

DRUGS (4)
  1. FERTINEX [Suspect]
     Indication: IN VITRO FERTILISATION
  2. MENOTROPINS [Suspect]
     Indication: IN VITRO FERTILISATION
  3. LEUPROLIDE ACETATE [Concomitant]
  4. CHORIONIC GONADOTROPHIN (CHORIONIC GONADOTROPHIN) [Concomitant]

REACTIONS (4)
  - ABDOMINAL DISTENSION [None]
  - DISCOMFORT [None]
  - HYPEREMESIS GRAVIDARUM [None]
  - OVARIAN HYPERSTIMULATION SYNDROME [None]
